FAERS Safety Report 9501885 (Version 1)
Quarter: 2013Q1

REPORT INFORMATION
  Report Type: Spontaneous
  Country: US (occurrence: None)
  Receive Date: 20130107
  Receipt Date: 20130107
  Transmission Date: 20140127
  Serious: No
  Sender: FDA-Public Use
  Company Number: PHEH2012US017932

PATIENT
  Sex: Female
  Weight: 53.1 kg

DRUGS (7)
  1. GILENYA (FTY) CAPSULE, 0.5MG [Suspect]
     Route: 048
  2. SERTRALINE (SERTRALINE) [Concomitant]
  3. FISH OIL (FISH OIL) [Concomitant]
  4. GLUCOSAMINE W/CHONDROITIN (CHONDROITIN SULFATE, GLUCOSAMINE) [Concomitant]
  5. VITAMIN B12 (CYANOCOBALAMIN) [Concomitant]
  6. CLONAZEPAM (CLONAZEPAM) [Concomitant]
  7. TRAZODONE (TRAZODONE) [Concomitant]

REACTIONS (4)
  - Hypoaesthesia [None]
  - Vision blurred [None]
  - Multiple sclerosis relapse [None]
  - Pain [None]
